FAERS Safety Report 7893835-4 (Version None)
Quarter: 2011Q4

REPORT INFORMATION
  Report Type: 
  Country: None (occurrence: None)
  Receive Date: 20111104
  Receipt Date: 20111101
  Transmission Date: 20120403
  Serious: Yes (Hospitalization, Other)
  Sender: FDA-Public Use
  Company Number: US-BRISTOL-MYERS SQUIBB COMPANY-15903123

PATIENT
  Age: 49 Year
  Sex: Female

DRUGS (14)
  1. LEVAQUIN [Concomitant]
     Dates: start: 20110310, end: 20110708
  2. POSACONAZOLE [Concomitant]
     Dates: end: 20110708
  3. MICAFUNGIN SODIUM [Concomitant]
     Dates: start: 20110925
  4. VORICONAZOLE [Concomitant]
     Dates: start: 20110924
  5. PREDNISONE [Concomitant]
  6. DAPSONE [Concomitant]
     Dates: start: 20110630
  7. ETOPOSIDE [Suspect]
     Indication: ACUTE MYELOID LEUKAEMIA
     Dates: start: 20110629, end: 20110703
  8. CYTARABINE [Suspect]
     Indication: ACUTE MYELOID LEUKAEMIA
     Dosage: NDC #55390-131-10
     Dates: start: 20110629, end: 20110703
  9. MITOXANTRONE [Suspect]
     Indication: ACUTE MYELOID LEUKAEMIA
     Dates: start: 20110629, end: 20110703
  10. LEVOFLOXACIN [Concomitant]
     Dates: end: 20111028
  11. ACYCLOVIR [Concomitant]
     Dates: start: 20110310
  12. MDX-1338 [Suspect]
     Indication: ACUTE MYELOID LEUKAEMIA
     Dosage: ALSO TOOK 245MG ON 21JUN11. ALSO 237MG
     Route: 042
     Dates: start: 20110621
  13. FLUCONAZOLE [Concomitant]
     Dates: start: 20110629, end: 20110925
  14. CARVEDILOL [Concomitant]

REACTIONS (5)
  - MUCOSAL INFLAMMATION [None]
  - PNEUMONIA FUNGAL [None]
  - FEBRILE NEUTROPENIA [None]
  - FUNGAL INFECTION [None]
  - SYNCOPE [None]
